FAERS Safety Report 5406106-2 (Version None)
Quarter: 2007Q3

REPORT INFORMATION
  Report Type: 
  Country: None (occurrence: None)
  Receive Date: 20070806
  Receipt Date: 20070726
  Transmission Date: 20080115
  Serious: Yes (Hospitalization)
  Sender: FDA-Public Use
  Company Number: PL-ROCHE-505351

PATIENT
  Age: 42 Year
  Sex: Female

DRUGS (4)
  1. XELODA [Suspect]
     Indication: BREAST CANCER
     Route: 048
  2. XELODA [Suspect]
     Route: 048
     Dates: end: 20070612
  3. XYZAL [Suspect]
     Indication: DRUG USE FOR UNKNOWN INDICATION
     Route: 065
  4. CLARITIN [Suspect]
     Indication: DRUG USE FOR UNKNOWN INDICATION
     Route: 048

REACTIONS (13)
  - ASTHENIA [None]
  - DIZZINESS [None]
  - DYSPEPSIA [None]
  - DYSPHONIA [None]
  - ERUCTATION [None]
  - FLATULENCE [None]
  - MALAISE [None]
  - METASTASES TO BONE [None]
  - PALMAR-PLANTAR ERYTHRODYSAESTHESIA SYNDROME [None]
  - SOMNOLENCE [None]
  - SWELLING FACE [None]
  - TONGUE DISORDER [None]
  - WEIGHT INCREASED [None]
